FAERS Safety Report 7207850-7 (Version None)
Quarter: 2010Q4

REPORT INFORMATION
  Report Type: 
  Country: None (occurrence: None)
  Receive Date: 20101221
  Receipt Date: 20101210
  Transmission Date: 20110411
  Serious: Yes (Death)
  Sender: FDA-Public Use
  Company Number: LEO-2010-01116

PATIENT
  Age: 66 Year
  Sex: Male
  Weight: 75 kg

DRUGS (8)
  1. INNOHEP [Suspect]
     Indication: PRODUCT USED FOR UNKNOWN INDICATION
     Dosage: (1 D), SUBCUTANEOUS
     Route: 058
  2. PIPERACILLIN [Suspect]
     Indication: ABDOMINAL INFECTION
     Dosage: (4.5 GM, 3 D), INTRAVENOUS
     Route: 042
     Dates: start: 20100609, end: 20100614
  3. METRONIDAZOLE [Suspect]
     Indication: ABDOMINAL INFECTION
     Dosage: (500 MG, 3 D), INTRAVENOUS
     Route: 042
     Dates: start: 20100615, end: 20100617
  4. TICARCILLIN (TICARCILLIN, CLAVULANATE POTASSIUM) [Suspect]
     Indication: ABDOMINAL INFECTION
     Dosage: (5.2 GM, 4 D), (5.2 GM, 3 D), (5.2 GM, 4 D)
     Dates: start: 20100615, end: 20100618
  5. TICARCILLIN (TICARCILLIN, CLAVULANATE POTASSIUM) [Suspect]
     Indication: ABDOMINAL INFECTION
     Dosage: (5.2 GM, 4 D), (5.2 GM, 3 D), (5.2 GM, 4 D)
     Dates: start: 20100619, end: 20100625
  6. TICARCILLIN (TICARCILLIN, CLAVULANATE POTASSIUM) [Suspect]
     Indication: ABDOMINAL INFECTION
     Dosage: (5.2 GM, 4 D), (5.2 GM, 3 D), (5.2 GM, 4 D)
     Dates: start: 20100626, end: 20100702
  7. PANCORAN (GLYCERYL TRINITRATE) [Suspect]
     Indication: PRODUCT USED FOR UNKNOWN INDICATION
     Dosage: (10 MG, 1 D)
  8. PANTOPRAZOLE [Suspect]
     Indication: PRODUCT USED FOR UNKNOWN INDICATION
     Dosage: (40 MG, 1 D), INTRAVENOUS
     Route: 042

REACTIONS (2)
  - ABDOMINAL INFECTION [None]
  - CHOLECYSTITIS [None]
